FAERS Safety Report 6454021-8 (Version None)
Quarter: 2009Q4

REPORT INFORMATION
  Report Type: 
  Country: None (occurrence: None)
  Receive Date: 20091117
  Receipt Date: 20091105
  Transmission Date: 20100525
  Serious: Yes (Hospitalization)
  Sender: FDA-Public Use
  Company Number: 8054218

PATIENT
  Age: 62 Year

DRUGS (2)
  1. KEPPRA [Suspect]
     Indication: HEREDITARY HAEMORRHAGIC TELANGIECTASIA
     Dosage: 1500 MG 2/D; PO
     Route: 048
  2. KEPPRA [Suspect]
     Indication: HEREDITARY HAEMORRHAGIC TELANGIECTASIA
     Dosage: 1000 MG 1/D; PO
     Route: 048

REACTIONS (4)
  - DYSKINESIA [None]
  - DYSPNOEA [None]
  - MUSCLE TWITCHING [None]
  - NO THERAPEUTIC RESPONSE [None]
